FAERS Safety Report 7139584 (Version 3)
Quarter: 2025Q3

REPORT INFORMATION
  Report Type: Spontaneous
  Country: GB (occurrence: GB)
  Receive Date: 20091005
  Receipt Date: 20250814
  Transmission Date: 20251020
  Serious: Yes (Hospitalization)
  Sender: MERCK SHARP & DOHME LLC
  Company Number: GB-MERCK-0910GBR00002

PATIENT
  Age: 22 Year
  Sex: Female

DRUGS (4)
  1. CASPOFUNGIN ACETATE [Suspect]
     Active Substance: CASPOFUNGIN ACETATE
     Indication: Infection
     Route: 042
     Dates: start: 20090708
  2. OSELTAMIVIR [Suspect]
     Active Substance: OSELTAMIVIR
     Indication: Influenza
     Dosage: DOSE DESCRIPTION : 75 MG, BID?DAILY DOSE : 150 MILLIGRAM
     Dates: start: 20090705
  3. MEROPENEM [Suspect]
     Active Substance: MEROPENEM
     Indication: Infection
  4. TEICOPLANIN [Suspect]
     Active Substance: TEICOPLANIN

REACTIONS (2)
  - Influenza [Recovered/Resolved]
  - Drug ineffective [Unknown]

NARRATIVE: CASE EVENT DATE: 20090708
